FAERS Safety Report 7576539-7 (Version None)
Quarter: 2011Q2

REPORT INFORMATION
  Report Type: 
  Country: None (occurrence: None)
  Receive Date: 20110624
  Receipt Date: 20110624
  Transmission Date: 20111010
  Serious: Yes (Hospitalization)
  Sender: FDA-Public Use
  Company Number: None

PATIENT
  Sex: Female
  Weight: 98.2 kg

DRUGS (1)
  1. CARBOPLATIN [Suspect]
     Dosage: 780 MG

REACTIONS (1)
  - THROMBOCYTOPENIA [None]
